FAERS Safety Report 11142413 (Version 1)
Quarter: 2015Q2

REPORT INFORMATION
  Report Type: Spontaneous
  Country: UA (occurrence: None)
  Receive Date: 20150526
  Receipt Date: 20150526
  Transmission Date: 20150821
  Serious: No
  Sender: FDA-Public Use
  Company Number: None

PATIENT
  Age: 63 Year
  Sex: Female
  Weight: 79.38 kg

DRUGS (4)
  1. FYCOMPA [Suspect]
     Active Substance: PERAMPANEL
     Indication: COMPLEX PARTIAL SEIZURES
     Route: 048
     Dates: start: 20150201, end: 20150523
  2. VIMPAT [Concomitant]
     Active Substance: LACOSAMIDE
  3. KEPPRA [Concomitant]
     Active Substance: LEVETIRACETAM
  4. RETIGABINE (TROBALT) [Concomitant]

REACTIONS (5)
  - Aggression [None]
  - Anxiety [None]
  - Anger [None]
  - Paranoia [None]
  - Personality change [None]

NARRATIVE: CASE EVENT DATE: 20150511
